FAERS Safety Report 19830396 (Version 1)
Quarter: 2021Q3

REPORT INFORMATION
  Report Type: Report from Study
  Country: US (occurrence: US)
  Receive Date: 20210914
  Receipt Date: 20210914
  Transmission Date: 20211014
  Serious: Yes (Hospitalization)
  Sender: FDA-Public Use
  Company Number: US-GILEAD-2021-0546485

PATIENT
  Age: 67 Year
  Sex: Female

DRUGS (16)
  1. AZTREONAM LYSINE [Suspect]
     Active Substance: AZTREONAM LYSINE
     Indication: CYSTIC FIBROSIS
     Dosage: 75 MG, TID
     Route: 065
  2. AZITHROMYCIN ANHYDROUS. [Concomitant]
     Active Substance: AZITHROMYCIN ANHYDROUS
  3. CLONAZEPAM. [Concomitant]
     Active Substance: CLONAZEPAM
  4. BETHANECHOL CHLORIDE. [Concomitant]
     Active Substance: BETHANECHOL CHLORIDE
  5. TRIKAFTA [Concomitant]
     Active Substance: ELEXACAFTOR\IVACAFTOR\TEZACAFTOR
  6. AZOR [ALPRAZOLAM] [Concomitant]
     Active Substance: ALPRAZOLAM
  7. NADOLOL. [Concomitant]
     Active Substance: NADOLOL
  8. COMPAZINE [Concomitant]
     Active Substance: PROCHLORPERAZINE MALEATE
  9. AZTREONAM LYSINE [Suspect]
     Active Substance: AZTREONAM LYSINE
     Indication: PSEUDOMONAS INFECTION
  10. ALBUTEROL [SALBUTAMOL] [Concomitant]
     Active Substance: ALBUTEROL
  11. MECLIZINE [Concomitant]
     Active Substance: MECLIZINE HYDROCHLORIDE
  12. CLONIDINE. [Concomitant]
     Active Substance: CLONIDINE
  13. PEPCID [Concomitant]
     Active Substance: FAMOTIDINE
  14. VENLAFAXINE [Concomitant]
     Active Substance: VENLAFAXINE HYDROCHLORIDE
  15. NAPROXEN. [Concomitant]
     Active Substance: NAPROXEN
  16. PULMOZYME [Concomitant]
     Active Substance: DORNASE ALFA

REACTIONS (1)
  - Infection [Recovered/Resolved]

NARRATIVE: CASE EVENT DATE: 20210819
